FAERS Safety Report 17596892 (Version 1)
Quarter: 2020Q1

REPORT INFORMATION
  Report Type: Spontaneous
  Country: IT (occurrence: IT)
  Receive Date: 20200330
  Receipt Date: 20200330
  Transmission Date: 20200409
  Serious: Yes (Other)
  Sender: FDA-Public Use
  Company Number: IT-BRISTOL-MYERS SQUIBB COMPANY-BMS-2020-024792

PATIENT
  Age: 56 Year
  Sex: Female

DRUGS (1)
  1. KENACORT [Suspect]
     Active Substance: TRIAMCINOLONE
     Indication: ARTHRALGIA
     Dosage: 1 DOSAGE FORM, TOTAL
     Route: 065
     Dates: start: 20200122, end: 20200122

REACTIONS (4)
  - Bradycardia [Recovering/Resolving]
  - Loss of consciousness [Recovering/Resolving]
  - Rash pruritic [Recovering/Resolving]
  - Hypersensitivity [Recovering/Resolving]

NARRATIVE: CASE EVENT DATE: 20200122
